FAERS Safety Report 9536395 (Version 1)
Quarter: 2013Q1

REPORT INFORMATION
  Report Type: Spontaneous
  Country: US (occurrence: None)
  Receive Date: 20130327
  Receipt Date: 20130327
  Transmission Date: 20140127
  Serious: Yes (Disabling)
  Sender: FDA-Public Use
  Company Number: 2011-2300

PATIENT
  Age: 63 Year
  Sex: Female
  Weight: 72.5 kg

DRUGS (7)
  1. SOMATULINE DEPOT INJECTION (120MG) [Suspect]
     Indication: ACROMEGALY
     Dosage: INJECTED EVERY 28 DAYS
     Route: 058
     Dates: start: 20100213, end: 201110
  2. SYNTHROID (LEVOTHYROXINE SODIUM) [Concomitant]
  3. LISINOPRIL (LISINOPRIL) [Concomitant]
  4. NEURONTIN (GABAPENTIN) [Concomitant]
  5. VITAMIN D (ERGOCALCIFEROL) [Concomitant]
  6. COUGH SYRUP NOS (COUGH SYRUP) [Concomitant]
  7. NASAL SPRAY NOS (NASAL PREPARATIONS) [Concomitant]

REACTIONS (6)
  - Arthralgia [None]
  - Muscle spasms [None]
  - Muscular weakness [None]
  - Myalgia [None]
  - Bone pain [None]
  - Insomnia [None]
